FAERS Safety Report 16363633 (Version 1)
Quarter: 2019Q2

REPORT INFORMATION
  Report Type: Spontaneous
  Country: DK (occurrence: DK)
  Receive Date: 20190528
  Receipt Date: 20190528
  Transmission Date: 20190711
  Serious: Yes (Other)
  Sender: FDA-Public Use
  Company Number: DK-MYLANLABS-2019M1048556

PATIENT
  Age: 48 Year
  Sex: Female

DRUGS (3)
  1. AZATHIOPRINE. [Suspect]
     Active Substance: AZATHIOPRINE
     Indication: CONNECTIVE TISSUE DISORDER
     Dosage: 150 MILLIGRAM, QD (STYRKE: 50 MG.)
     Route: 048
     Dates: start: 2004, end: 20161208
  2. URSOCHOL [Concomitant]
     Active Substance: URSODIOL
     Indication: PRIMARY BILIARY CHOLANGITIS
     Dosage: 1000 MILLIGRAM, QD (STYRKE: 250 MG.)
     Route: 048
     Dates: start: 2004
  3. ENTOCORT [Concomitant]
     Active Substance: BUDESONIDE
     Indication: AUTOIMMUNE HEPATITIS
     Dosage: 3 MILLIGRAM, QD (STYRKE: 3 MG.)
     Route: 048
     Dates: start: 2004

REACTIONS (3)
  - Skin papilloma [Unknown]
  - Squamous cell carcinoma [Recovered/Resolved]
  - Actinic keratosis [Unknown]

NARRATIVE: CASE EVENT DATE: 2015
